FAERS Safety Report 8758715 (Version 2)
Quarter: 2012Q4

REPORT INFORMATION
  Report Type: 
  Country: AU (occurrence: AU)
  Receive Date: 20120829
  Receipt Date: 20120920
  Transmission Date: 20130627
  Serious: Yes (Hospitalization, Other)
  Sender: FDA-Public Use
  Company Number: PHHY2012AU074151

PATIENT
  Age: 32 Year
  Sex: Male
  Weight: 104 kg

DRUGS (2)
  1. CLOZARIL [Suspect]
     Indication: SCHIZOPHRENIA
     Dosage: 400 mg, UNK
     Route: 048
     Dates: start: 20021014, end: 201207
  2. ZUCLOPENTHIXOL [Concomitant]
     Dosage: 400 mg fortnightly
     Route: 030

REACTIONS (16)
  - Sinus tachycardia [Recovering/Resolving]
  - Troponin I increased [Recovering/Resolving]
  - Blood creatine phosphokinase increased [Recovering/Resolving]
  - Cardiac enzymes increased [Recovering/Resolving]
  - Verbal abuse [None]
  - Pericardial effusion [None]
  - Suicidal ideation [Not Recovered/Not Resolved]
  - Violence-related symptom [Not Recovered/Not Resolved]
  - Aggression [Not Recovered/Not Resolved]
  - Anger [Unknown]
  - Judgement impaired [Unknown]
  - Hallucination, auditory [Unknown]
  - Sleep disorder [Not Recovered/Not Resolved]
  - Paranoia [Not Recovered/Not Resolved]
  - General physical health deterioration [Unknown]
  - Agitation [Not Recovered/Not Resolved]
